FAERS Safety Report 10095590 (Version 1)
Quarter: 2014Q2

REPORT INFORMATION
  Report Type: Spontaneous
  Country: US (occurrence: None)
  Receive Date: 20140421
  Receipt Date: 20140421
  Transmission Date: 20141212
  Serious: Yes (Other)
  Sender: FDA-Public Use
  Company Number: None

PATIENT
  Age: 22 Year
  Sex: Female
  Weight: 63.96 kg

DRUGS (1)
  1. LEVETIRACETAM EXTENDED-RELEASE [Suspect]
     Indication: CONVULSION
     Route: 048

REACTIONS (4)
  - Convulsion [None]
  - Product substitution issue [None]
  - Medication residue present [None]
  - Product quality issue [None]
